FAERS Safety Report 6438405-X (Version None)
Quarter: 2009Q4

REPORT INFORMATION
  Report Type: 
  Country: None (occurrence: None)
  Receive Date: 20091109
  Receipt Date: 20091026
  Transmission Date: 20100525
  Serious: Yes (Hospitalization)
  Sender: FDA-Public Use
  Company Number: 1000009827

PATIENT
  Age: 23 Year
  Sex: Female

DRUGS (4)
  1. ESCITALOPRAM [Suspect]
     Dosage: 40 MG (20 MG, 2 IN 1 D), ORAL; 10 MG (10 MG, 1 IN 1 D), ORAL
     Route: 048
     Dates: start: 20090930, end: 20090930
  2. ESCITALOPRAM [Suspect]
     Dosage: 40 MG (20 MG, 2 IN 1 D), ORAL; 10 MG (10 MG, 1 IN 1 D), ORAL
     Route: 048
     Dates: end: 20090930
  3. LYSANXIA (TABLETS) [Suspect]
     Dosage: 40 MG (20 MG, 2 IN 1 D), ORAL; 10 MG (10 MG, 1 IN  1 D), ORAL
     Route: 048
     Dates: start: 20090930, end: 20090930
  4. LYSANXIA (TABLETS) [Suspect]
     Dosage: 40 MG (20 MG, 2 IN 1 D), ORAL; 10 MG (10 MG, 1 IN  1 D), ORAL
     Route: 048
     Dates: end: 20090930

REACTIONS (6)
  - INCORRECT DOSE ADMINISTERED [None]
  - MEDICATION ERROR [None]
  - OVERDOSE [None]
  - PALLOR [None]
  - SOMNOLENCE [None]
  - VOMITING [None]
